APPROVED DRUG PRODUCT: HYDROXYZINE HYDROCHLORIDE
Active Ingredient: HYDROXYZINE HYDROCHLORIDE
Strength: 25MG/ML
Dosage Form/Route: INJECTABLE;INJECTION
Application: A089106 | Product #001
Applicant: PHARMAFAIR INC
Approved: Feb 14, 1986 | RLD: No | RS: No | Type: DISCN